FAERS Safety Report 4843601-9 (Version None)
Quarter: 2005Q4

REPORT INFORMATION
  Report Type: 
  Country: None (occurrence: None)
  Receive Date: 20051128
  Receipt Date: 20051116
  Transmission Date: 20060501
  Serious: Yes (Death, Hospitalization)
  Sender: FDA-Public Use
  Company Number: 2005151964

PATIENT
  Age: 76 Year
  Sex: Male
  Weight: 54.7945 kg

DRUGS (4)
  1. BENADRYL [Suspect]
     Indication: PREMEDICATION
     Dosage: 50 MG INTRAVENOUS
     Route: 042
     Dates: start: 20051103, end: 20051103
  2. ATIVAN [Suspect]
     Indication: PREMEDICATION
     Dosage: 1 MG INTRAVENOUS
     Route: 042
     Dates: start: 20051103, end: 20051103
  3. CARBOPLATIN [Suspect]
     Indication: NON-SMALL CELL LUNG CANCER
     Dates: start: 20051103
  4. TAXOL [Suspect]
     Indication: NON-SMALL CELL LUNG CANCER
     Dates: start: 20051103

REACTIONS (7)
  - ACUTE RESPIRATORY FAILURE [None]
  - BLOOD PH DECREASED [None]
  - DEPRESSED LEVEL OF CONSCIOUSNESS [None]
  - DISEASE PROGRESSION [None]
  - HYPERCAPNIA [None]
  - LETHARGY [None]
  - RESPIRATORY ACIDOSIS [None]
